FAERS Safety Report 13795760 (Version 2)
Quarter: 2017Q3

REPORT INFORMATION
  Report Type: Spontaneous
  Country: IT (occurrence: IT)
  Receive Date: 20170726
  Receipt Date: 20170906
  Transmission Date: 20171127
  Serious: Yes (Life-Threatening, Hospitalization)
  Sender: FDA-Public Use
  Company Number: PHHY2017IT109615

PATIENT
  Age: 70 Year
  Sex: Male

DRUGS (5)
  1. FOLIC ACID. [Concomitant]
     Active Substance: FOLIC ACID
     Indication: PRODUCT USED FOR UNKNOWN INDICATION
     Dosage: 400 MG/M2, UNK
     Route: 042
  2. OXALIPLATIN. [Suspect]
     Active Substance: OXALIPLATIN
     Indication: ADENOCARCINOMA OF COLON
     Dosage: 85 MG/M2, CYCLIC
     Route: 041
     Dates: start: 20170704, end: 20170704
  3. FLUOROURACIL. [Concomitant]
     Active Substance: FLUOROURACIL
     Indication: PRODUCT USED FOR UNKNOWN INDICATION
     Dosage: 400 MG/M2, UNK
     Route: 041
  4. FLUOROURACIL. [Concomitant]
     Active Substance: FLUOROURACIL
     Dosage: 2400 UNK, UNK
     Route: 041
  5. AVASTIN [Concomitant]
     Active Substance: BEVACIZUMAB
     Indication: PRODUCT USED FOR UNKNOWN INDICATION
     Dosage: 4 MG/KG, UNK
     Route: 065

REACTIONS (5)
  - Hypertension [Recovered/Resolved]
  - Bronchospasm [Recovered/Resolved]
  - Infusion related reaction [Recovered/Resolved]
  - Cyanosis [Recovered/Resolved]
  - Pruritus generalised [Recovered/Resolved]

NARRATIVE: CASE EVENT DATE: 20170704
